FAERS Safety Report 13206971 (Version 1)
Quarter: 2017Q1

REPORT INFORMATION
  Report Type: Spontaneous
  Country: US (occurrence: US)
  Receive Date: 20170208
  Receipt Date: 20170208
  Transmission Date: 20170428
  Serious: No
  Sender: FDA-Public Use
  Company Number: US-AMGEN-USASP2016141521

PATIENT
  Age: 65 Year
  Sex: Male

DRUGS (13)
  1. FLUOROURACIL. [Concomitant]
     Active Substance: FLUOROURACIL
     Indication: GASTROOESOPHAGEAL CANCER
  2. IRINOTECAN [Concomitant]
     Active Substance: IRINOTECAN
     Indication: GASTROOESOPHAGEAL CANCER
  3. NEULASTA [Suspect]
     Active Substance: PEGFILGRASTIM
     Indication: PRODUCT USED FOR UNKNOWN INDICATION
     Dosage: UNK
     Route: 065
  4. FOLINIC ACID [Concomitant]
     Active Substance: LEUCOVORIN
     Indication: GASTROOESOPHAGEAL CANCER
  5. IRINOTECAN [Concomitant]
     Active Substance: IRINOTECAN
     Indication: COLON CANCER
     Dosage: UNK UNK, Q2WK
  6. FLUOROURACIL. [Concomitant]
     Active Substance: FLUOROURACIL
     Indication: COLON CANCER
     Dosage: UNK UNK, Q2WK
  7. CETUXIMAB. [Concomitant]
     Active Substance: CETUXIMAB
     Indication: COLON CANCER
     Dosage: UNK
  8. CETUXIMAB. [Concomitant]
     Active Substance: CETUXIMAB
     Indication: GASTROOESOPHAGEAL CANCER
  9. FOLINIC ACID [Concomitant]
     Active Substance: LEUCOVORIN
     Indication: COLON CANCER
     Dosage: UNK UNK, Q2WK
  10. DOCETAXEL. [Concomitant]
     Active Substance: DOCETAXEL
     Indication: GASTROOESOPHAGEAL CANCER
  11. CISPLATIN. [Concomitant]
     Active Substance: CISPLATIN
     Indication: GASTROOESOPHAGEAL CANCER
  12. DOCETAXEL. [Concomitant]
     Active Substance: DOCETAXEL
     Indication: COLON CANCER
     Dosage: UNK
  13. CISPLATIN. [Concomitant]
     Active Substance: CISPLATIN
     Indication: COLON CANCER
     Dosage: UNK

REACTIONS (1)
  - Inappropriate schedule of drug administration [Unknown]
